FAERS Safety Report 9839159 (Version 4)
Quarter: 2014Q1

REPORT INFORMATION
  Report Type: Spontaneous
  Country: US (occurrence: US)
  Receive Date: 20140123
  Receipt Date: 20140226
  Transmission Date: 20141002
  Serious: Yes (Hospitalization, Other)
  Sender: FDA-Public Use
  Company Number: US-GILEAD-2014-0091980

PATIENT
  Sex: Female

DRUGS (3)
  1. LETAIRIS [Suspect]
     Indication: PRODUCT USED FOR UNKNOWN INDICATION
     Dosage: 10 MG, UNK
     Route: 065
     Dates: start: 20080619
  2. LETAIRIS [Suspect]
     Dosage: 10 MG, QD
     Route: 065
     Dates: start: 20130928
  3. VELETRI [Concomitant]

REACTIONS (7)
  - Device related infection [Unknown]
  - Pyrexia [Unknown]
  - Pain in extremity [Unknown]
  - Pain in jaw [Unknown]
  - Diarrhoea [Unknown]
  - Headache [Unknown]
  - Flushing [Unknown]
